FAERS Safety Report 22154065 (Version 2)
Quarter: 2023Q2

REPORT INFORMATION
  Report Type: Spontaneous
  Country: US (occurrence: US)
  Receive Date: 20230330
  Receipt Date: 20230413
  Transmission Date: 20230722
  Serious: Yes (Hospitalization)
  Sender: FDA-Public Use
  Company Number: US-TEVA-2023-US-2870005

PATIENT
  Age: 22 Year
  Sex: Male

DRUGS (2)
  1. HALOPERIDOL [Suspect]
     Active Substance: HALOPERIDOL
     Indication: Alcohol poisoning
     Dosage: 5 MG
     Route: 030
  2. HALOPERIDOL [Suspect]
     Active Substance: HALOPERIDOL
     Indication: Agitation

REACTIONS (3)
  - Atrioventricular block [Recovered/Resolved]
  - Wolff-Parkinson-White syndrome [Recovered/Resolved]
  - Unmasking of previously unidentified disease [Unknown]
